FAERS Safety Report 9163218 (Version 1)
Quarter: 2013Q1

REPORT INFORMATION
  Report Type: Spontaneous
  Country: FR (occurrence: FR)
  Receive Date: 20130314
  Receipt Date: 20130314
  Transmission Date: 20140127
  Serious: Yes (Hospitalization)
  Sender: FDA-Public Use
  Company Number: FR-GLAXOSMITHKLINE-B0638250A

PATIENT
  Age: 48 Year
  Sex: Male

DRUGS (7)
  1. AUGMENTIN [Suspect]
     Indication: PNEUMONIA
     Route: 065
     Dates: start: 20091225, end: 20091230
  2. FORTUM [Suspect]
     Indication: PNEUMONIA
     Route: 051
     Dates: start: 20091230, end: 20100119
  3. CIFLOX [Suspect]
     Indication: PNEUMONIA
     Route: 065
     Dates: start: 20091225, end: 20100206
  4. AMIKACIN [Suspect]
     Indication: PNEUMONIA
     Route: 051
     Dates: start: 20091225, end: 20091230
  5. VANCOMYCINE [Suspect]
     Indication: PNEUMONIA
     Route: 051
     Dates: start: 20091230, end: 20100206
  6. FLAGYL [Suspect]
     Indication: PNEUMONIA
     Route: 065
     Dates: start: 20091230, end: 20100119
  7. TAZOCILLINE [Suspect]
     Indication: PNEUMONIA
     Route: 051
     Dates: start: 20100119, end: 20100206

REACTIONS (12)
  - Drug reaction with eosinophilia and systemic symptoms [Recovered/Resolved]
  - Rash maculo-papular [Recovered/Resolved]
  - Oedema peripheral [Recovered/Resolved]
  - Face oedema [Recovered/Resolved]
  - Cheilitis [Recovered/Resolved]
  - Atrophic glossitis [Recovered/Resolved]
  - Hyperthermia [Recovered/Resolved]
  - Lymphadenopathy [Recovered/Resolved]
  - Skin exfoliation [Recovered/Resolved]
  - Eosinophil count increased [Recovered/Resolved]
  - Dermatitis exfoliative [Recovered/Resolved]
  - Liver function test abnormal [Recovering/Resolving]
